FAERS Safety Report 26022762 (Version 1)
Quarter: 2025Q4

REPORT INFORMATION
  Report Type: Report from Study
  Country: US (occurrence: US)
  Receive Date: 20251110
  Receipt Date: 20251110
  Transmission Date: 20260117
  Serious: No
  Sender: GRIFOLS
  Company Number: US-IGSA-BIG0032186

PATIENT
  Sex: Female
  Weight: 57.596 kg

DRUGS (1)
  1. GAMUNEX-C [Suspect]
     Active Substance: HUMAN IMMUNOGLOBULIN G
     Indication: Chronic inflammatory demyelinating polyradiculoneuropathy
     Dosage: 60 GRAM
     Route: 042
     Dates: start: 2004

REACTIONS (5)
  - Blood pressure increased [Not Recovered/Not Resolved]
  - Urticaria [Recovered/Resolved]
  - Condition aggravated [Unknown]
  - Weight fluctuation [Not Recovered/Not Resolved]
  - Intentional dose omission [Recovered/Resolved]

NARRATIVE: CASE EVENT DATE: 20060101
